FAERS Safety Report 12433217 (Version 3)
Quarter: 2016Q4

REPORT INFORMATION
  Report Type: Spontaneous
  Country: JP (occurrence: JP)
  Receive Date: 20160603
  Receipt Date: 20161214
  Transmission Date: 20170207
  Serious: Yes (Death, Hospitalization, Other)
  Sender: FDA-Public Use
  Company Number: JP-ELI_LILLY_AND_COMPANY-JP201606000705

PATIENT
  Age: 77 Year
  Sex: Male

DRUGS (6)
  1. MICAMLO [Concomitant]
     Active Substance: AMLODIPINE BESYLATE\TELMISARTAN
     Indication: HYPERTENSION
     Route: 048
     Dates: end: 20160429
  2. CRESTOR [Concomitant]
     Active Substance: ROSUVASTATIN CALCIUM
     Indication: DYSLIPIDAEMIA
     Dosage: 2.5 MG, QD
     Route: 048
     Dates: end: 20160429
  3. MECOBALAMIN [Concomitant]
     Active Substance: METHYLCOBALAMIN
     Indication: PRODUCT USED FOR UNKNOWN INDICATION
     Dosage: 500 UG, QD
     Route: 048
     Dates: end: 20160429
  4. ERBITUX [Suspect]
     Active Substance: CETUXIMAB
     Indication: HYPOPHARYNGEAL CANCER
     Dosage: 600 MG, WEEKLY (1/W)
     Route: 042
     Dates: start: 20160301, end: 20160301
  5. LOTRIGA [Concomitant]
     Active Substance: OMEGA-3-ACID ETHYL ESTERS
     Indication: DYSLIPIDAEMIA
     Dosage: 2 G, QD
     Route: 048
     Dates: end: 20160429
  6. ERBITUX [Suspect]
     Active Substance: CETUXIMAB
     Dosage: 390 MG, WEEKLY (1/W)
     Route: 042
     Dates: start: 20160308, end: 20160419

REACTIONS (25)
  - Pneumothorax [Fatal]
  - Dermatitis acneiform [Unknown]
  - Blood urea increased [Unknown]
  - Dry skin [Unknown]
  - Pneumonia bacterial [Fatal]
  - Respiratory failure [Fatal]
  - Hypokalaemia [Recovered/Resolved]
  - Hypernatraemia [Unknown]
  - Hypermagnesaemia [Unknown]
  - Paronychia [Unknown]
  - Dry mouth [Unknown]
  - Hypocalcaemia [Unknown]
  - Circulatory collapse [Fatal]
  - Stomatitis [Unknown]
  - Blood lactate dehydrogenase increased [Unknown]
  - Hyponatraemia [Unknown]
  - Anaemia [Unknown]
  - Pharyngeal inflammation [Unknown]
  - Interstitial lung disease [Fatal]
  - Blood bilirubin increased [Unknown]
  - Radiation skin injury [Unknown]
  - Aspartate aminotransferase increased [Unknown]
  - Alanine aminotransferase increased [Unknown]
  - Hyperkalaemia [Recovered/Resolved]
  - Blood alkaline phosphatase increased [Unknown]

NARRATIVE: CASE EVENT DATE: 20160421
